FAERS Safety Report 15879942 (Version 1)
Quarter: 2019Q1

REPORT INFORMATION
  Report Type: Spontaneous
  Country: US (occurrence: US)
  Receive Date: 20190128
  Receipt Date: 20190128
  Transmission Date: 20190417
  Serious: No
  Sender: FDA-Public Use
  Company Number: US-009507513-1901USA008818

PATIENT
  Age: 66 Year

DRUGS (4)
  1. FOSAMAX [Suspect]
     Active Substance: ALENDRONATE SODIUM
  2. HYDROCHLOROTHIAZIDE. [Suspect]
     Active Substance: HYDROCHLOROTHIAZIDE
  3. PRINIVIL [Suspect]
     Active Substance: LISINOPRIL
  4. COZAAR [Suspect]
     Active Substance: LOSARTAN POTASSIUM

REACTIONS (2)
  - Cough [Unknown]
  - Myalgia [Unknown]

NARRATIVE: CASE EVENT DATE: 20190108
